FAERS Safety Report 17053675 (Version 1)
Quarter: 2019Q4

REPORT INFORMATION
  Report Type: Report from Study
  Country: DE (occurrence: DE)
  Receive Date: 20191120
  Receipt Date: 20191120
  Transmission Date: 20200122
  Serious: Yes (Hospitalization, Other)
  Sender: FDA-Public Use
  Company Number: DE-MYLANLABS-2019M1110437

PATIENT
  Age: 29 Year
  Sex: Female
  Weight: 73 kg

DRUGS (5)
  1. LACOSAMIDE. [Suspect]
     Active Substance: LACOSAMIDE
     Dosage: 3 DOSAGE FORM, QD (50MG MORNINGS AND MIDDAY, 100MG EVENINGS)
     Route: 048
     Dates: start: 20100323
  2. LEVETIRACETAM. [Suspect]
     Active Substance: LEVETIRACETAM
     Indication: EPILEPSY
     Dosage: 2 DOSAGE FORM, QD (500MG EVENINGS, 1000MG MORNINGS AND EVENINGS)
     Route: 048
     Dates: end: 201003
  3. LEVETIRACETAM. [Suspect]
     Active Substance: LEVETIRACETAM
     Dosage: 3000 MILLIGRAM, QD (1500 MG, 2X/DAY (BID))
     Route: 048
     Dates: start: 200901, end: 20090322
  4. LEVETIRACETAM. [Suspect]
     Active Substance: LEVETIRACETAM
     Dosage: 3000 MILLIGRAM, QD (1000 MG, 3X/DAY (TID))
     Route: 048
     Dates: start: 20100323
  5. LACOSAMIDE. [Suspect]
     Active Substance: LACOSAMIDE
     Indication: EPILEPSY
     Dosage: 200 MILLIGRAM, QD (100 MG, 2X/DAY (BID))
     Route: 048
     Dates: start: 20090827, end: 20100322

REACTIONS (5)
  - Seizure [Recovered/Resolved]
  - Concussion [Recovered/Resolved]
  - Post-traumatic neck syndrome [Recovered/Resolved]
  - Road traffic accident [Recovered/Resolved]
  - Maternal exposure during pregnancy [Recovered/Resolved]

NARRATIVE: CASE EVENT DATE: 201002
